FAERS Safety Report 20704085 (Version 2)
Quarter: 2022Q2

REPORT INFORMATION
  Report Type: Spontaneous
  Country: IT (occurrence: IT)
  Receive Date: 20220413
  Receipt Date: 20220420
  Transmission Date: 20220721
  Serious: No
  Sender: FDA-Public Use
  Company Number: IT-THERATECHNOLOGIES EUROPE LIMITED-2022-THE-IBA-000087

PATIENT

DRUGS (1)
  1. TROGARZO [Suspect]
     Active Substance: IBALIZUMAB-UIYK
     Indication: Product used for unknown indication
     Route: 042

REACTIONS (1)
  - Rash [Unknown]
